FAERS Safety Report 4547173-8 (Version None)
Quarter: 2005Q1

REPORT INFORMATION
  Report Type: 
  Country: None (occurrence: None)
  Receive Date: 20050107
  Receipt Date: 20041229
  Transmission Date: 20050727
  Serious: Yes (Hospitalization)
  Sender: FDA-Public Use
  Company Number: 200414903FR

PATIENT
  Age: 70 Year
  Sex: Female
  Weight: 45 kg

DRUGS (8)
  1. LOVENOX [Suspect]
     Dates: start: 20041206, end: 20041208
  2. MORPHINE [Suspect]
     Route: 042
     Dates: start: 20041206, end: 20041208
  3. SURBRONC [Suspect]
     Route: 042
     Dates: start: 20041206, end: 20041208
  4. EUPANTOL [Suspect]
     Route: 042
     Dates: start: 20041206, end: 20041206
  5. ACETAMINOPHEN [Suspect]
     Route: 042
     Dates: start: 20041206, end: 20041208
  6. MOPRAL [Suspect]
     Route: 048
     Dates: start: 20041207, end: 20041207
  7. ASPEGIC 325 [Concomitant]
     Route: 048
  8. INSULIN [Concomitant]

REACTIONS (1)
  - NEUTROPENIA [None]
